FAERS Safety Report 20104549 (Version 2)
Quarter: 2022Q1

REPORT INFORMATION
  Report Type: Spontaneous
  Country: None (occurrence: CN)
  Receive Date: 20211123
  Receipt Date: 20220303
  Transmission Date: 20220423
  Serious: Yes (Hospitalization)
  Sender: FDA-Public Use
  Company Number: CN-Jiangsu Hengrui Medicine Co., Ltd.-2122246

PATIENT
  Age: 34 Year
  Sex: Male
  Weight: 73 kg

DRUGS (12)
  1. IRINOTECAN HYDROCHLORIDE [Suspect]
     Active Substance: IRINOTECAN HYDROCHLORIDE
     Indication: Colon cancer
     Route: 041
     Dates: start: 20210831, end: 20210831
  2. MECAPEGFILGRASTIM [Suspect]
     Active Substance: MECAPEGFILGRASTIM
     Dates: start: 20210903, end: 20210903
  3. LEVOLEUCOVORIN CALCIUM [Suspect]
     Active Substance: LEVOLEUCOVORIN CALCIUM
     Route: 041
     Dates: start: 20210831, end: 20210831
  4. OXALIPLATIN [Suspect]
     Active Substance: OXALIPLATIN
     Route: 041
     Dates: start: 20210831, end: 20210831
  5. BEVACIZUMAB [Suspect]
     Active Substance: BEVACIZUMAB
     Route: 041
     Dates: start: 20210831, end: 20210831
  6. FLUOROURACIL [Suspect]
     Active Substance: FLUOROURACIL
     Route: 041
     Dates: start: 20210831, end: 20210902
  7. ACETAMINOPHEN\OXYCODONE HYDROCHLORIDE [Concomitant]
     Active Substance: ACETAMINOPHEN\OXYCODONE HYDROCHLORIDE
     Route: 048
     Dates: start: 20210830, end: 20210913
  8. ATROPINE [Concomitant]
     Active Substance: ATROPINE
     Route: 030
     Dates: start: 20210831, end: 20210831
  9. DIPHENHYDRAMINE [Concomitant]
     Active Substance: DIPHENHYDRAMINE
     Route: 030
     Dates: start: 20210831, end: 20210831
  10. DEXAMETHASONE [Concomitant]
     Active Substance: DEXAMETHASONE
     Route: 041
     Dates: start: 20210831, end: 20210831
  11. DOLASETRON [Concomitant]
     Active Substance: DOLASETRON
     Route: 042
     Dates: start: 20210831, end: 20210831
  12. ILAPRAZOLE [Concomitant]
     Active Substance: ILAPRAZOLE
     Route: 041
     Dates: start: 20210831, end: 20210831

REACTIONS (1)
  - Drug-induced liver injury [Recovering/Resolving]

NARRATIVE: CASE EVENT DATE: 20210913
